FAERS Safety Report 10249192 (Version 2)
Quarter: 2015Q3

REPORT INFORMATION
  Report Type: Spontaneous
  Country: US (occurrence: US)
  Receive Date: 20140620
  Receipt Date: 20150719
  Transmission Date: 20151125
  Serious: Yes (Death, Other)
  Sender: FDA-Public Use
  Company Number: US-SA-2014SA077752

PATIENT

DRUGS (3)
  1. PLAVIX [Suspect]
     Active Substance: CLOPIDOGREL BISULFATE
     Indication: THROMBOSIS
     Route: 048
     Dates: start: 20080108, end: 20080315
  2. ASPIRIN. [Concomitant]
     Active Substance: ASPIRIN
  3. WARFARIN [Concomitant]
     Active Substance: WARFARIN

REACTIONS (4)
  - Haemorrhage [Unknown]
  - Gastrointestinal haemorrhage [Fatal]
  - Death [Fatal]
  - Multiple injuries [Unknown]
